FAERS Safety Report 15791387 (Version 1)
Quarter: 2019Q1

REPORT INFORMATION
  Report Type: Spontaneous
  Country: US (occurrence: US)
  Receive Date: 20190104
  Receipt Date: 20190104
  Transmission Date: 20190417
  Serious: No
  Sender: FDA-Public Use
  Company Number: None

PATIENT
  Age: 46 Year
  Sex: Male
  Weight: 81 kg

DRUGS (3)
  1. DULOXETINE. [Suspect]
     Active Substance: DULOXETINE
     Indication: ANXIETY
     Dosage: ?          QUANTITY:1 CAPSULE(S);?
     Route: 048
  2. DULOXETINE. [Concomitant]
     Active Substance: DULOXETINE
  3. DEXILANT [Concomitant]
     Active Substance: DEXLANSOPRAZOLE

REACTIONS (5)
  - Chest pain [None]
  - Myalgia [None]
  - Fatigue [None]
  - Product quality issue [None]
  - Headache [None]

NARRATIVE: CASE EVENT DATE: 20190104
